FAERS Safety Report 4290714-9 (Version None)
Quarter: 2004Q1

REPORT INFORMATION
  Report Type: 
  Country: None (occurrence: None)
  Receive Date: 20040209
  Receipt Date: 20040129
  Transmission Date: 20041129
  Serious: Yes (Life-Threatening, Hospitalization)
  Sender: FDA-Public Use
  Company Number: 200401525

PATIENT
  Age: 3 Year
  Sex: Female

DRUGS (1)
  1. UNSPECIFIED APAP PRODUCT (PARACETAMOL) [Suspect]

REACTIONS (3)
  - HEPATIC FAILURE [None]
  - LIVER TRANSPLANT [None]
  - OVERDOSE [None]
